FAERS Safety Report 6146461-1 (Version None)
Quarter: 2009Q2

REPORT INFORMATION
  Report Type: 
  Country: None (occurrence: None)
  Receive Date: 20090407
  Receipt Date: 20090331
  Transmission Date: 20091009
  Serious: Yes (Hospitalization, Other)
  Sender: FDA-Public Use
  Company Number: A0777151A

PATIENT
  Sex: Female
  Weight: 80 kg

DRUGS (1)
  1. SERETIDE [Suspect]
     Indication: ASTHMA
     Dates: start: 20090219, end: 20090310

REACTIONS (1)
  - PULMONARY OEDEMA [None]
